FAERS Safety Report 13403347 (Version 1)
Quarter: 2017Q2

REPORT INFORMATION
  Report Type: Spontaneous
  Country: FR (occurrence: FR)
  Receive Date: 20170404
  Receipt Date: 20170404
  Transmission Date: 20170830
  Serious: Yes (Other)
  Sender: FDA-Public Use
  Company Number: FR-009507513-1703FRA014683

PATIENT
  Age: 79 Year
  Sex: Male

DRUGS (9)
  1. KEYTRUDA [Suspect]
     Active Substance: PEMBROLIZUMAB
     Indication: RETINAL MELANOMA
     Dosage: 2 MG/KG, CYCLICAL
     Route: 042
     Dates: start: 20161207, end: 20170208
  2. SILODYX [Concomitant]
     Active Substance: SILODOSIN
  3. PRETERAX (INDAPAMIDE (+) PERINDOPRIL ARGININE) [Concomitant]
     Active Substance: INDAPAMIDE\PERINDOPRIL
  4. VESICARE [Concomitant]
     Active Substance: SOLIFENACIN SUCCINATE
     Dosage: 5 MG, UNK
  5. GLICLAZIDE [Concomitant]
     Active Substance: GLICLAZIDE
  6. LAMALINE [Concomitant]
     Active Substance: ACETAMINOPHEN\CAFFEINE\OPIUM
  7. TAMSULOSIN HYDROCHLORIDE. [Concomitant]
     Active Substance: TAMSULOSIN HYDROCHLORIDE
  8. ISOPTINE LP [Concomitant]
     Active Substance: VERAPAMIL HYDROCHLORIDE
     Dosage: FORMULATION: PROLONGED RELEASE SCORED FILM COATED TABLET
  9. DOLIPRANE [Concomitant]
     Active Substance: ACETAMINOPHEN

REACTIONS (2)
  - Condition aggravated [Not Recovered/Not Resolved]
  - Richter^s syndrome [Not Recovered/Not Resolved]

NARRATIVE: CASE EVENT DATE: 20170301
